FAERS Safety Report 13940010 (Version 1)
Quarter: 2017Q3

REPORT INFORMATION
  Report Type: Spontaneous
  Country: US (occurrence: US)
  Receive Date: 20170906
  Receipt Date: 20170906
  Transmission Date: 20171127
  Serious: Yes (Other)
  Sender: FDA-Public Use
  Company Number: US-BAYER-2017-164476

PATIENT
  Age: 78 Year
  Sex: Female
  Weight: 68 kg

DRUGS (1)
  1. DR. SCHOLLS DURAGEL CALLUS REMOVERS [Suspect]
     Active Substance: SALICYLIC ACID
     Indication: THERAPEUTIC SKIN CARE TOPICAL
     Dosage: USED ALL 4 DISCS DOSE
     Route: 061

REACTIONS (4)
  - Product adhesion issue [Unknown]
  - Wound infection [Unknown]
  - Pain [Unknown]
  - Erythema [Unknown]
